FAERS Safety Report 8862716 (Version 1)
Quarter: 2012Q4

REPORT INFORMATION
  Report Type: 
  Country: US (occurrence: US)
  Receive Date: 20121026
  Receipt Date: 20121026
  Transmission Date: 20130627
  Serious: No
  Sender: FDA-Public Use
  Company Number: US-VERTEX PHARMACEUTICAL INC.-2012-023474

PATIENT
  Age: 29 Year
  Sex: Female
  Weight: 59 kg

DRUGS (3)
  1. INCIVEK [Suspect]
     Indication: HEPATITIS C
     Dosage: 750 mg, tid
     Route: 048
     Dates: start: 20121018
  2. RIBAVIRIN [Suspect]
     Indication: HEPATITIS C
     Dosage: 600 mg, bid
     Dates: start: 20121018
  3. PEGINTRON                          /01543001/ [Suspect]
     Indication: HEPATITIS C
     Dosage: 180 ?g, qw
     Route: 058
     Dates: start: 20121018

REACTIONS (12)
  - Influenza like illness [Not Recovered/Not Resolved]
  - Pyrexia [Recovered/Resolved]
  - Stomatitis [Not Recovered/Not Resolved]
  - Feeling cold [Not Recovered/Not Resolved]
  - Oral mucosal blistering [Not Recovered/Not Resolved]
  - Tongue injury [Not Recovered/Not Resolved]
  - Decreased appetite [Not Recovered/Not Resolved]
  - Fatigue [Not Recovered/Not Resolved]
  - Rash macular [Not Recovered/Not Resolved]
  - Burning sensation [Not Recovered/Not Resolved]
  - Nausea [Not Recovered/Not Resolved]
  - Vomiting [Not Recovered/Not Resolved]
